FAERS Safety Report 16098370 (Version 1)
Quarter: 2019Q1

REPORT INFORMATION
  Report Type: Spontaneous
  Country: DE (occurrence: DE)
  Receive Date: 20190321
  Receipt Date: 20190321
  Transmission Date: 20190418
  Serious: Yes (Other)
  Sender: FDA-Public Use
  Company Number: DE-TEVA-2019-DE-1026088

PATIENT
  Sex: Male

DRUGS (1)
  1. ROPINIROL ABZ 4 MG RETARDTABLETTEN [Suspect]
     Active Substance: ROPINIROLE HYDROCHLORIDE

REACTIONS (4)
  - Homosexuality [Unknown]
  - Sexual abuse [Unknown]
  - Sexually inappropriate behaviour [Unknown]
  - Sexual dysfunction [Unknown]
